FAERS Safety Report 6931177-1 (Version None)
Quarter: 2010Q3

REPORT INFORMATION
  Report Type: 
  Country: None (occurrence: None)
  Receive Date: 20100813
  Receipt Date: 20100728
  Transmission Date: 20110219
  Serious: Yes (Disabling, Other)
  Sender: FDA-Public Use
  Company Number: ACO_01626_2010

PATIENT
  Sex: Female

DRUGS (5)
  1. AMPYRA [Suspect]
     Indication: PRODUCT USED FOR UNKNOWN INDICATION
     Dosage: (10 MG QD), (10 MG BID), (10 MG QD)
     Dates: start: 20100704, end: 20100719
  2. AMPYRA [Suspect]
     Indication: PRODUCT USED FOR UNKNOWN INDICATION
     Dosage: (10 MG QD), (10 MG BID), (10 MG QD)
     Dates: start: 20100720, end: 20100720
  3. AMPYRA [Suspect]
     Indication: PRODUCT USED FOR UNKNOWN INDICATION
     Dosage: (10 MG QD), (10 MG BID), (10 MG QD)
     Dates: start: 20100728, end: 20100730
  4. DOXEPIN HCL [Concomitant]
  5. LORAZEPAM [Concomitant]

REACTIONS (4)
  - ABASIA [None]
  - CONVULSION [None]
  - PARANOIA [None]
  - TREMOR [None]
